FAERS Safety Report 15435954 (Version 5)
Quarter: 2018Q4

REPORT INFORMATION
  Report Type: Report from Study
  Country: US (occurrence: US)
  Receive Date: 20180927
  Receipt Date: 20181207
  Transmission Date: 20190204
  Serious: Yes (Other)
  Sender: FDA-Public Use
  Company Number: US-JNJFOC-20180932313

PATIENT
  Sex: Female

DRUGS (4)
  1. IMBRUVICA [Suspect]
     Active Substance: IBRUTINIB
     Indication: CHRONIC LYMPHOCYTIC LEUKAEMIA
     Route: 048
     Dates: start: 20180628
  2. IMBRUVICA [Suspect]
     Active Substance: IBRUTINIB
     Indication: CHRONIC LYMPHOCYTIC LEUKAEMIA
     Route: 048
     Dates: start: 20181106
  3. IMBRUVICA [Suspect]
     Active Substance: IBRUTINIB
     Indication: CHRONIC LYMPHOCYTIC LEUKAEMIA
     Route: 048
     Dates: start: 201809
  4. IMBRUVICA [Suspect]
     Active Substance: IBRUTINIB
     Indication: CHRONIC LYMPHOCYTIC LEUKAEMIA
     Route: 048
     Dates: start: 20181004

REACTIONS (16)
  - Peripheral swelling [Unknown]
  - Feeling hot [Unknown]
  - Red blood cell count decreased [Unknown]
  - Myalgia [Unknown]
  - Eye haemorrhage [Unknown]
  - Headache [Unknown]
  - Platelet count decreased [Unknown]
  - Skin discolouration [Unknown]
  - Nausea [Unknown]
  - Arthralgia [Unknown]
  - Eye injury [Unknown]
  - Peripheral embolism [Unknown]
  - Post thrombotic syndrome [Unknown]
  - Pain of skin [Unknown]
  - Haemoptysis [Unknown]
  - Diarrhoea [Unknown]

NARRATIVE: CASE EVENT DATE: 2018
